FAERS Safety Report 16417224 (Version 1)
Quarter: 2019Q2

REPORT INFORMATION
  Report Type: Spontaneous
  Country: GB (occurrence: GB)
  Receive Date: 20190611
  Receipt Date: 20190611
  Transmission Date: 20190711
  Serious: Yes (Other)
  Sender: FDA-Public Use
  Company Number: GB-NAPPMUNDI-GBR-2019-0066500

PATIENT
  Age: 43 Year
  Sex: Female

DRUGS (3)
  1. MST CONTINUS [Suspect]
     Active Substance: MORPHINE SULFATE
     Dosage: 200 MG, BID
     Route: 048
  2. MST CONTINUS [Suspect]
     Active Substance: MORPHINE SULFATE
     Indication: PAIN
     Dosage: 140 MG, BID
     Route: 048
  3. PREDNISONE. [Concomitant]
     Active Substance: PREDNISONE
     Indication: ASTHMA
     Dosage: UNK
     Dates: start: 1997

REACTIONS (1)
  - Asthma [Unknown]
